FAERS Safety Report 13052202 (Version 1)
Quarter: 2016Q4

REPORT INFORMATION
  Report Type: Spontaneous
  Country: CH (occurrence: CH)
  Receive Date: 20161221
  Receipt Date: 20161221
  Transmission Date: 20170207
  Serious: Yes (Hospitalization)
  Sender: FDA-Public Use
  Company Number: CH-TEVA-720807ISR

PATIENT
  Age: 66 Year
  Sex: Female

DRUGS (2)
  1. HERCEPTIN [Suspect]
     Active Substance: TRASTUZUMAB
     Dosage: .2857 MG/KG DAILY; 18 ADMINISTRATIONS MADE
     Route: 041
     Dates: start: 20151112, end: 20161109
  2. LETROZOL TEVA [Suspect]
     Active Substance: LETROZOLE
     Dosage: 2.5 MILLIGRAM DAILY; STRENGTH: 2.5MG, TEMPORARILY SUSPENDED
     Route: 048
     Dates: start: 20151112, end: 20161130

REACTIONS (2)
  - Dyspnoea [Recovered/Resolved]
  - Ejection fraction decreased [Not Recovered/Not Resolved]

NARRATIVE: CASE EVENT DATE: 201611
